FAERS Safety Report 19032601 (Version 2)
Quarter: 2022Q2

REPORT INFORMATION
  Report Type: Report from Study
  Country: BR (occurrence: BR)
  Receive Date: 20210319
  Receipt Date: 20220623
  Transmission Date: 20220721
  Serious: Yes (Hospitalization, Other)
  Sender: FDA-Public Use
  Company Number: BR-JNJFOC-20210327123

PATIENT
  Age: 6 Decade
  Sex: Female
  Weight: 83 kg

DRUGS (7)
  1. INFLIXIMAB [Suspect]
     Active Substance: INFLIXIMAB
     Indication: Colitis
     Dosage: PRESCRIBED TREATMENT REGIMEN IS 4 VIALS (UNKNOWN INTERVAL)
     Route: 041
     Dates: start: 20200911
  2. INFLIXIMAB [Suspect]
     Active Substance: INFLIXIMAB
     Indication: Colitis ulcerative
  3. COVID-19 VACCINE NOS [Suspect]
     Active Substance: COVID-19 VACCINE NOS
     Indication: COVID-19 prophylaxis
     Dosage: SHE HAS THE 3 DOSES
     Route: 065
  4. GLIFAGE [Concomitant]
     Active Substance: METFORMIN HYDROCHLORIDE
     Route: 065
  5. LOSARTAN POTASSIUM [Concomitant]
     Active Substance: LOSARTAN POTASSIUM
     Route: 065
  6. SERTRALINE [Concomitant]
     Active Substance: SERTRALINE HYDROCHLORIDE
     Route: 065
  7. LEVOTHYROXINE [Concomitant]
     Active Substance: LEVOTHYROXINE
     Route: 065

REACTIONS (11)
  - Kidney infection [Recovered/Resolved]
  - Hepatic enzyme abnormal [Recovered/Resolved]
  - COVID-19 [Unknown]
  - Venous injury [Unknown]
  - Intestinal haemorrhage [Unknown]
  - Fistula repair [Unknown]
  - Vomiting [Unknown]
  - Fibromyalgia [Unknown]
  - Hepatic steatosis [Unknown]
  - Blood triglycerides abnormal [Unknown]
  - Colitis [Unknown]

NARRATIVE: CASE EVENT DATE: 20210201
